FAERS Safety Report 7910350-X (Version None)
Quarter: 2011Q4

REPORT INFORMATION
  Report Type: 
  Country: None (occurrence: None)
  Receive Date: 20111111
  Receipt Date: 20111101
  Transmission Date: 20120403
  Serious: Yes (Other)
  Sender: FDA-Public Use
  Company Number: TH-ROCHE-1009238

PATIENT

DRUGS (1)
  1. AVASTIN [Suspect]
     Indication: PTERYGIUM
     Route: 026

REACTIONS (1)
  - CONJUNCTIVAL HAEMORRHAGE [None]
